FAERS Safety Report 21994476 (Version 5)
Quarter: 2023Q2

REPORT INFORMATION
  Report Type: Spontaneous
  Country: US (occurrence: US)
  Receive Date: 20230215
  Receipt Date: 20230613
  Transmission Date: 20230721
  Serious: No
  Sender: FDA-Public Use
  Company Number: US-BIOGEN-2021BI01081769

PATIENT
  Age: 60 Year
  Sex: Female

DRUGS (12)
  1. VUMERITY [Suspect]
     Active Substance: DIROXIMEL FUMARATE
     Indication: Multiple sclerosis
     Route: 050
     Dates: start: 20211221
  2. VUMERITY [Suspect]
     Active Substance: DIROXIMEL FUMARATE
     Route: 050
  3. VUMERITY [Suspect]
     Active Substance: DIROXIMEL FUMARATE
     Route: 050
     Dates: start: 20211217
  4. EZETIMIBE [Concomitant]
     Active Substance: EZETIMIBE
     Route: 050
  5. FERROUS GLUCONATE [Concomitant]
     Active Substance: FERROUS GLUCONATE
     Route: 050
  6. ASPIRIN [Concomitant]
     Active Substance: ASPIRIN
     Route: 050
  7. CARBAMAZEPINE [Concomitant]
     Active Substance: CARBAMAZEPINE
     Route: 050
  8. GABAPENTIN [Concomitant]
     Active Substance: GABAPENTIN
     Route: 050
  9. AMLODIPINE BESYLATE [Concomitant]
     Active Substance: AMLODIPINE BESYLATE
     Route: 050
  10. LISINOPRIL [Concomitant]
     Active Substance: LISINOPRIL
     Route: 050
  11. ATENOLOL [Concomitant]
     Active Substance: ATENOLOL
     Route: 050
  12. METFORMIN HYDROCHLORIDE [Concomitant]
     Active Substance: METFORMIN HYDROCHLORIDE
     Route: 050

REACTIONS (9)
  - Prescribed overdose [Not Recovered/Not Resolved]
  - Inappropriate schedule of product administration [Unknown]
  - Cataract [Not Recovered/Not Resolved]
  - Gastrointestinal sounds abnormal [Unknown]
  - Blood potassium increased [Unknown]
  - Ulcer [Unknown]
  - Dysphonia [Unknown]
  - Abdominal pain upper [Unknown]
  - Diarrhoea [Unknown]

NARRATIVE: CASE EVENT DATE: 20211221
